FAERS Safety Report 9265047 (Version 1)
Quarter: 2013Q2

REPORT INFORMATION
  Report Type: Spontaneous
  Country: US (occurrence: None)
  Receive Date: 20130425
  Receipt Date: 20130425
  Transmission Date: 20140414
  Serious: Yes (Other)
  Sender: FDA-Public Use
  Company Number: US-DEXPHARM-20130167

PATIENT
  Age: 59 Year
  Sex: Male

DRUGS (7)
  1. ATORVASTATIN [Suspect]
     Indication: ACUTE MYOCARDIAL INFARCTION
     Route: 048
     Dates: end: 201108
  2. OMEPRAZOLE [Suspect]
     Indication: OESOPHAGITIS
     Route: 048
     Dates: end: 201108
  3. GEMIFIBROZIL [Suspect]
     Indication: ACUTE MYOCARDIAL INFARCTION
     Dates: end: 201108
  4. AMLOPDIPINE [Concomitant]
  5. ASPIRIN [Concomitant]
  6. NITRATE [Concomitant]
  7. METOPROLOL [Concomitant]

REACTIONS (8)
  - Gastrooesophageal reflux disease [None]
  - Dysphagia [None]
  - Oesophagitis [None]
  - Acquired oesophageal web [None]
  - Myalgia [None]
  - Muscular weakness [None]
  - Blood creatine phosphokinase increased [None]
  - Polymyositis [None]
